FAERS Safety Report 6270044-6 (Version None)
Quarter: 2009Q3

REPORT INFORMATION
  Report Type: 
  Country: None (occurrence: None)
  Receive Date: 20090716
  Receipt Date: 20070622
  Transmission Date: 20100115
  Serious: Yes (Hospitalization, Other)
  Sender: FDA-Public Use
  Company Number: US-ASTRAZENECA-2006UW24796

PATIENT
  Age: 444 Month
  Sex: Female
  Weight: 127 kg

DRUGS (42)
  1. SEROQUEL [Suspect]
     Indication: SCHIZOPHRENIA, PARANOID TYPE
     Dosage: 25-300 MG
     Route: 048
     Dates: start: 19980211, end: 20000421
  2. SEROQUEL [Suspect]
     Route: 048
     Dates: start: 20000110, end: 20060406
  3. SEROQUEL [Suspect]
     Dosage: 25-300 MG
     Route: 048
     Dates: start: 20030601, end: 20060614
  4. GEODON [Concomitant]
     Dosage: 60 MG TO 80 MG
     Dates: start: 20050301, end: 20070501
  5. HALDOL [Concomitant]
     Dosage: 5 MG TO 10 MG
     Dates: start: 20020906, end: 20060310
  6. HALDOL [Concomitant]
     Dosage: 2 - 10 MG
     Route: 048
  7. NAVANE [Concomitant]
     Dates: start: 19950301, end: 19960301
  8. RISPERDAL [Concomitant]
     Dosage: 2 MG TO 3 MG
     Dates: start: 19960717, end: 19990308
  9. RISPERDAL [Concomitant]
     Dosage: 2 MG TO 3 MG
     Dates: start: 20041028
  10. STELAZINE [Concomitant]
     Dates: start: 19990901
  11. ABILIFY [Concomitant]
     Dates: start: 20030501
  12. ZYPREXA [Concomitant]
     Dates: start: 19970724, end: 19970828
  13. ZYPREXA [Concomitant]
     Dates: start: 20030601
  14. ZOLOFT [Concomitant]
  15. TRAZODONE [Concomitant]
  16. DEPAKOTE [Concomitant]
     Dosage: 250- 100 MG
     Route: 065
  17. WELLBUTRIN [Concomitant]
  18. CLONAZEPAM [Concomitant]
  19. PAXIL [Concomitant]
     Route: 048
  20. COGENTIN [Concomitant]
     Route: 048
  21. GLUCOPHAGE [Concomitant]
     Dosage: 500 - 1000 MG
     Route: 048
  22. AMINOPHYLLINE [Concomitant]
     Route: 065
  23. INSULIN [Concomitant]
     Indication: DIABETES MELLITUS
     Dosage: STRENGTH 50- 100 UNITS
     Route: 058
  24. CIPRO [Concomitant]
     Route: 048
  25. KLONOPIN [Concomitant]
     Dosage: 0.5 - 35 MG
     Route: 048
  26. LESCOL [Concomitant]
     Dosage: 20 - 40 MG
     Route: 048
  27. GLUCOTROL XL [Concomitant]
     Dosage: 5- 20 MG
     Route: 048
  28. ISORDIL [Concomitant]
     Route: 048
  29. KEFLEX [Concomitant]
     Route: 065
  30. NITROSTAT [Concomitant]
     Route: 060
  31. HUMULIN R [Concomitant]
     Indication: DIABETES MELLITUS
     Dosage: 60 U, TWO TIMES A DAY
     Route: 058
  32. TENORMIN [Concomitant]
     Dosage: STRENGTH 25, 50 MG
     Route: 048
     Dates: start: 20060612
  33. AMBIEN [Concomitant]
     Route: 048
  34. TYLENOL (CAPLET) [Concomitant]
     Route: 048
  35. ASPIRIN [Concomitant]
     Route: 002
  36. HEPARIN SODIUM [Concomitant]
     Route: 058
  37. ZOCOR [Concomitant]
     Indication: CHEST PAIN
     Route: 048
  38. BENZTROPINE [Concomitant]
     Route: 048
  39. PEPCID [Concomitant]
     Route: 065
  40. LANTUS [Concomitant]
     Dosage: STRENGTH 25, 50 UNITS
     Route: 065
  41. TRICOR [Concomitant]
     Route: 065
  42. ARIXTRA [Concomitant]
     Route: 058
     Dates: start: 20060612

REACTIONS (5)
  - ACUTE CORONARY SYNDROME [None]
  - CARDIAC DISORDER [None]
  - CHEST PAIN [None]
  - DIABETES MELLITUS [None]
  - DIABETES MELLITUS INADEQUATE CONTROL [None]
